FAERS Safety Report 17273541 (Version 2)
Quarter: 2020Q1

REPORT INFORMATION
  Report Type: Spontaneous
  Country: JP (occurrence: JP)
  Receive Date: 20200115
  Receipt Date: 20200124
  Transmission Date: 20200409
  Serious: Yes (Other)
  Sender: FDA-Public Use
  Company Number: JP-ALLERGAN-2001457US

PATIENT
  Sex: Female

DRUGS (3)
  1. ALPHAGAN P [Suspect]
     Active Substance: BRIMONIDINE TARTRATE
     Indication: EXFOLIATION GLAUCOMA
     Dosage: 2 GTT, BID
     Route: 047
     Dates: start: 201210, end: 20180728
  2. LUMIGAN [Suspect]
     Active Substance: BIMATOPROST
     Indication: EXFOLIATION GLAUCOMA
     Dosage: 2 GTT, QD
     Route: 047
     Dates: start: 201208
  3. GLANATEC [Concomitant]
     Active Substance: RIPASUDIL HYDROCHLORIDE DIHYDRATE
     Dosage: UNK
     Dates: start: 20180728

REACTIONS (3)
  - Conjunctivitis [Unknown]
  - Corneal opacity [Not Recovered/Not Resolved]
  - Blepharitis [Unknown]

NARRATIVE: CASE EVENT DATE: 20170715
